FAERS Safety Report 16432485 (Version 1)
Quarter: 2019Q2

REPORT INFORMATION
  Report Type: Spontaneous
  Country: ES (occurrence: ES)
  Receive Date: 20190614
  Receipt Date: 20190614
  Transmission Date: 20190711
  Serious: Yes (Other)
  Sender: FDA-Public Use
  Company Number: ES-TEVA-2019-ES-1062344

PATIENT
  Age: 78 Year
  Sex: Female
  Weight: 77 kg

DRUGS (1)
  1. CELECOXIB (1140A) [Suspect]
     Active Substance: CELECOXIB
     Indication: LIGAMENT SPRAIN
     Dosage: 200MG PER DAY
     Route: 048
     Dates: start: 20190507

REACTIONS (4)
  - Haematochezia [Unknown]
  - Abdominal pain upper [Unknown]
  - Nausea [Unknown]
  - Muscle spasms [Unknown]

NARRATIVE: CASE EVENT DATE: 20190509
